FAERS Safety Report 10191277 (Version 1)
Quarter: 2014Q2

REPORT INFORMATION
  Report Type: Spontaneous
  Country: JP (occurrence: JP)
  Receive Date: 20140523
  Receipt Date: 20140523
  Transmission Date: 20141212
  Serious: Yes (Other)
  Sender: FDA-Public Use
  Company Number: JP-009507513-1405JPN008952

PATIENT
  Age: 73 Year
  Sex: Female

DRUGS (2)
  1. BONALON [Suspect]
     Dosage: 35 MG/WEEK
     Route: 048
     Dates: start: 201108, end: 201108
  2. ONEALFA [Suspect]
     Dosage: 1.0 MICROGRAM DAILY
     Route: 048
     Dates: start: 201108, end: 201108

REACTIONS (1)
  - Erythema multiforme [Unknown]
